FAERS Safety Report 7607776-0 (Version None)
Quarter: 2011Q3

REPORT INFORMATION
  Report Type: 
  Country: None (occurrence: None)
  Receive Date: 20110713
  Receipt Date: 20110601
  Transmission Date: 20111222
  Serious: Yes (Other)
  Sender: FDA-Public Use
  Company Number: PHHY2011US48182

PATIENT
  Age: 54 Year
  Sex: Female

DRUGS (2)
  1. CALCIUM, D3 [Concomitant]
  2. FEMARA [Suspect]
     Dosage: 2.5 MG, 1XDAY
     Dates: start: 20110529

REACTIONS (8)
  - DYSPHONIA [None]
  - DRY SKIN [None]
  - URTICARIA [None]
  - HYPERSENSITIVITY [None]
  - RESPIRATORY TRACT CONGESTION [None]
  - HEART RATE INCREASED [None]
  - CHEST DISCOMFORT [None]
  - NASAL CONGESTION [None]
